FAERS Safety Report 20003957 (Version 2)
Quarter: 2021Q4

REPORT INFORMATION
  Report Type: Spontaneous
  Country: US (occurrence: US)
  Receive Date: 20211027
  Receipt Date: 20211111
  Transmission Date: 20220303
  Serious: Yes (Other)
  Sender: FDA-Public Use
  Company Number: US-PFIZER INC-202101392341

PATIENT
  Age: 41 Year
  Sex: Female
  Weight: 45.36 kg

DRUGS (1)
  1. MEDROXYPROGESTERONE ACETATE [Suspect]
     Active Substance: MEDROXYPROGESTERONE ACETATE
     Indication: Turner^s syndrome
     Dosage: TAKE IT ONCE A DAY THE FIRST 10 DAYS OF EACH MONTH
     Dates: start: 20211015

REACTIONS (11)
  - Syncope [Unknown]
  - Illness [Unknown]
  - Chills [Unknown]
  - Insomnia [Unknown]
  - Somnolence [Unknown]
  - Fatigue [Unknown]
  - Dysgeusia [Unknown]
  - Off label use [Unknown]
  - Feeling drunk [Unknown]
  - Abdominal discomfort [Unknown]
  - Abdominal pain upper [Unknown]

NARRATIVE: CASE EVENT DATE: 20210101
